FAERS Safety Report 9697515 (Version 1)
Quarter: 2013Q4

REPORT INFORMATION
  Report Type: Spontaneous
  Country: US (occurrence: None)
  Receive Date: 20131119
  Receipt Date: 20131119
  Transmission Date: 20140711
  Serious: Yes (Disabling)
  Sender: FDA-Public Use
  Company Number: None

PATIENT
  Age: 34 Year
  Sex: Female
  Weight: 72.58 kg

DRUGS (9)
  1. CIPROFLOXACIN HCL [Suspect]
     Dosage: PILL TWICE DAILY BUT I ONLY TOOK 1 BY MOUTH
     Dates: start: 20131106, end: 20131106
  2. ADAPTOGEN R3 [Concomitant]
  3. PREMIER VITAMIN C [Concomitant]
  4. SUPER CELLZYME [Concomitant]
  5. PHYTO CAL MAG W/BORON [Concomitant]
  6. ORGANDRAINEX [Concomitant]
  7. SPECTRALYTE [Concomitant]
  8. KELPCOM [Concomitant]
  9. CUMANDA [Concomitant]

REACTIONS (12)
  - Urinary tract infection [None]
  - Kidney infection [None]
  - Disorientation [None]
  - Confusional state [None]
  - Paranoia [None]
  - Aphonia [None]
  - Movement disorder [None]
  - Feeling drunk [None]
  - Crying [None]
  - Anger [None]
  - Thinking abnormal [None]
  - Pain in extremity [None]
